FAERS Safety Report 7540131-0 (Version None)
Quarter: 2011Q2

REPORT INFORMATION
  Report Type: 
  Country: None (occurrence: None)
  Receive Date: 20110610
  Receipt Date: 20110606
  Transmission Date: 20111010
  Serious: Yes (Other)
  Sender: FDA-Public Use
  Company Number: JP-TEVA-284806USA

PATIENT
  Age: 3 Year

DRUGS (1)
  1. PIMOZIDE TABLETS [Suspect]
     Dosage: .4 GRAM;
     Route: 048

REACTIONS (7)
  - SOMNOLENCE [None]
  - DYSSTASIA [None]
  - DRUG PRESCRIBING ERROR [None]
  - MOOD ALTERED [None]
  - DYSURIA [None]
  - SALIVARY HYPERSECRETION [None]
  - MUSCLE TIGHTNESS [None]
